FAERS Safety Report 5486843-4 (Version None)
Quarter: 2007Q4

REPORT INFORMATION
  Report Type: 
  Country: None (occurrence: None)
  Receive Date: 20071012
  Receipt Date: 20071012
  Transmission Date: 20080405
  Serious: Yes (Other)
  Sender: FDA-Public Use
  Company Number: None

PATIENT
  Age: 49 Year
  Sex: Male
  Weight: 78.9259 kg

DRUGS (1)
  1. CHANTIX [Suspect]
     Indication: SMOKING CESSATION THERAPY
     Dosage: 1 MG BID PO 047
     Route: 048
     Dates: start: 20070226

REACTIONS (8)
  - ALCOHOL USE [None]
  - CHILD ABUSE [None]
  - FAMILY STRESS [None]
  - IRRITABILITY [None]
  - NIGHTMARE [None]
  - PERSONALITY CHANGE [None]
  - SPOUSAL ABUSE [None]
  - VERBAL ABUSE [None]
